FAERS Safety Report 4662787-2 (Version None)
Quarter: 2005Q2

REPORT INFORMATION
  Report Type: 
  Country: None (occurrence: None)
  Receive Date: 20050512
  Receipt Date: 20050427
  Transmission Date: 20051028
  Serious: Yes (Other)
  Sender: FDA-Public Use
  Company Number: EWC050443769

PATIENT
  Age: 66 Year
  Sex: Female

DRUGS (10)
  1. GEMZAR [Suspect]
     Indication: NON-SMALL CELL LUNG CANCER
     Dosage: 2000 MG/M2 OTHER
     Route: 050
     Dates: start: 20050304
  2. PLATINOL (CISPLATIN PHARMACIA) [Concomitant]
  3. ENOXAPARIN SODIUM [Concomitant]
  4. LORAMET (LORAMETAZEPAM) [Concomitant]
  5. MEDROL [Concomitant]
  6. AMLOR (AMLODIPINE BESILATE) [Concomitant]
  7. OMEPRAZOLE [Concomitant]
  8. NEURONTIN (GABAPENTIN PFIZER) [Concomitant]
  9. SERETIDE [Concomitant]
  10. SPIRIVA [Concomitant]

REACTIONS (1)
  - CEREBROVASCULAR DISORDER [None]
